FAERS Safety Report 8872731 (Version 1)
Quarter: 2012Q4

REPORT INFORMATION
  Report Type: Spontaneous
  Country: US (occurrence: None)
  Receive Date: 20121026
  Receipt Date: 20121026
  Transmission Date: 20130627
  Serious: No
  Sender: FDA-Public Use
  Company Number: None

PATIENT
  Age: 58 Year
  Sex: Female
  Weight: 66 kg

DRUGS (1)
  1. VANCOMYCIN [Suspect]
     Dosage: 1000 MG BID IV
     Route: 042
     Dates: start: 20120913, end: 20121005

REACTIONS (2)
  - Rash [None]
  - Eosinophilia [None]
